FAERS Safety Report 8794217 (Version 4)
Quarter: 2013Q3

REPORT INFORMATION
  Report Type: Report from Study
  Country: JP (occurrence: JP)
  Receive Date: 20120917
  Receipt Date: 20130703
  Transmission Date: 20140515
  Serious: Yes (Other)
  Sender: FDA-Public Use
  Company Number: JP-ELI_LILLY_AND_COMPANY-JP201203002453

PATIENT
  Age: 85 Year
  Sex: Female

DRUGS (2)
  1. TERIPARATIDE [Suspect]
     Dosage: UNK
     Route: 058
     Dates: start: 20120229, end: 20130202
  2. TERIPARATIDE [Suspect]
     Dosage: UNK
     Route: 058
     Dates: start: 201304, end: 201304

REACTIONS (5)
  - Fracture [Unknown]
  - Fracture pain [Unknown]
  - Urethral haemorrhage [Unknown]
  - Vaginal haemorrhage [Unknown]
  - Nausea [Not Recovered/Not Resolved]
